FAERS Safety Report 18458698 (Version 3)
Quarter: 2020Q4

REPORT INFORMATION
  Report Type: Spontaneous
  Country: NL (occurrence: NL)
  Receive Date: 20201103
  Receipt Date: 20201112
  Transmission Date: 20210114
  Serious: Yes (Hospitalization, Other)
  Sender: FDA-Public Use
  Company Number: NL-NOVOPROD-763929

PATIENT
  Sex: Male

DRUGS (2)
  1. NOVORAPID [Suspect]
     Active Substance: INSULIN ASPART
     Indication: PRODUCT USED FOR UNKNOWN INDICATION
     Dosage: VERY HIGH DOSES
     Route: 042
  2. NOVORAPID [Suspect]
     Active Substance: INSULIN ASPART
     Dosage: 4 IU, QD
     Route: 042

REACTIONS (3)
  - COVID-19 [Unknown]
  - Anti-insulin antibody [Recovered/Resolved]
  - Coma [Unknown]
